FAERS Safety Report 6810110-7 (Version None)
Quarter: 2010Q2

REPORT INFORMATION
  Report Type: 
  Country: None (occurrence: None)
  Receive Date: 20100630
  Receipt Date: 20100618
  Transmission Date: 20101027
  Serious: Yes (Hospitalization)
  Sender: FDA-Public Use
  Company Number: JP-JNJFOC-20041102363

PATIENT
  Sex: Female
  Weight: 43 kg

DRUGS (20)
  1. REMICADE [Suspect]
     Indication: RHEUMATOID ARTHRITIS
     Dosage: 23 INFUSIONS WITHOUT DATES
     Route: 042
  2. REMICADE [Suspect]
     Route: 042
  3. REMICADE [Suspect]
     Dosage: 3 MG/KG
     Route: 042
  4. REMICADE [Suspect]
     Route: 042
  5. REMICADE [Suspect]
     Route: 042
  6. REMICADE [Suspect]
     Dosage: 29TH DOSE
     Route: 042
  7. REMICADE [Suspect]
     Route: 042
  8. RHEUMATREX [Suspect]
     Indication: RHEUMATOID ARTHRITIS
     Route: 048
  9. RHEUMATREX [Suspect]
     Route: 048
  10. RHEUMATREX [Suspect]
     Route: 048
  11. RHEUMATREX [Suspect]
     Route: 048
  12. RHEUMATREX [Suspect]
     Route: 048
  13. PREDONINE [Suspect]
     Indication: RHEUMATOID ARTHRITIS
     Route: 048
  14. VOLTAREN [Concomitant]
     Indication: RHEUMATOID ARTHRITIS
     Route: 048
  15. SELBEX [Concomitant]
     Indication: RHEUMATOID ARTHRITIS
     Route: 048
  16. HUSCODE [Concomitant]
     Route: 048
  17. BONALON [Concomitant]
     Indication: OSTEOPOROSIS
     Route: 048
  18. ZOPICOOL [Concomitant]
     Indication: INSOMNIA
     Route: 048
  19. HYALEIN [Concomitant]
  20. CRESTOR [Concomitant]
     Indication: HYPERLIPIDAEMIA
     Route: 048

REACTIONS (3)
  - ECZEMA [None]
  - MYCOSIS FUNGOIDES [None]
  - PYELONEPHRITIS [None]
